FAERS Safety Report 8109423-0 (Version None)
Quarter: 2012Q1

REPORT INFORMATION
  Report Type: 
  Country: None (occurrence: None)
  Receive Date: 20120202
  Receipt Date: 20120110
  Transmission Date: 20120608
  Serious: No
  Sender: FDA-Public Use
  Company Number: US-AMGEN-USASP2012002107

PATIENT
  Sex: Female

DRUGS (1)
  1. ENBREL [Suspect]
     Indication: RHEUMATOID ARTHRITIS
     Dosage: 25 MG, 2 TIMES/WK
     Dates: start: 20070901

REACTIONS (6)
  - TOOTHACHE [None]
  - GINGIVAL RECESSION [None]
  - DRY EYE [None]
  - GINGIVAL PAIN [None]
  - INFLAMMATION [None]
  - SENSITIVITY OF TEETH [None]
